FAERS Safety Report 7059979-4 (Version None)
Quarter: 2010Q4

REPORT INFORMATION
  Report Type: 
  Country: None (occurrence: None)
  Receive Date: 20101025
  Receipt Date: 20101011
  Transmission Date: 20110411
  Serious: Yes (Other)
  Sender: FDA-Public Use
  Company Number: DE-CELGENEUS-062-50794-10101516

PATIENT
  Age: 69 Year
  Sex: Male

DRUGS (1)
  1. VIDAZA [Suspect]
     Indication: MYELODYSPLASTIC SYNDROME
     Route: 065

REACTIONS (5)
  - FEBRILE NEUTROPENIA [None]
  - HAEMATOMA [None]
  - LARYNGITIS [None]
  - PANCYTOPENIA [None]
  - URINARY TRACT INFECTION [None]
